FAERS Safety Report 25756128 (Version 1)
Quarter: 2025Q3

REPORT INFORMATION
  Report Type: Spontaneous
  Country: US (occurrence: None)
  Receive Date: 20250902
  Receipt Date: 20250902
  Transmission Date: 20251020
  Serious: Yes (Disabling, Other)
  Sender: FDA-CTU
  Company Number: None

PATIENT
  Age: 26 Year
  Sex: Female
  Weight: 76.5 kg

DRUGS (6)
  1. VENLAFAXINE [Suspect]
     Active Substance: VENLAFAXINE HYDROCHLORIDE
     Indication: Anxiety
     Dosage: OTHER QUANTITY : 1 CAPSULE(S);?FREQUENCY : AT BEDTIME;?
     Route: 048
     Dates: start: 20241001, end: 20250601
  2. VENLAFAXINE [Suspect]
     Active Substance: VENLAFAXINE HYDROCHLORIDE
     Indication: Depression
  3. SERTRALINE [Suspect]
     Active Substance: SERTRALINE HYDROCHLORIDE
  4. ESCITALOPRAM [Suspect]
     Active Substance: ESCITALOPRAM OXALATE
  5. 150mg wellbutrin [Concomitant]
  6. 75mg Phentermine [Concomitant]

REACTIONS (18)
  - Headache [None]
  - Drug withdrawal syndrome [None]
  - Insomnia [None]
  - Vomiting [None]
  - Nausea [None]
  - Electric shock sensation [None]
  - Weight decreased [None]
  - Hyperacusis [None]
  - Hyperhidrosis [None]
  - Diarrhoea [None]
  - Depression [None]
  - Depersonalisation/derealisation disorder [None]
  - Confusional state [None]
  - Irritability [None]
  - Mental fatigue [None]
  - Disturbance in attention [None]
  - Suicidal ideation [None]
  - Anger [None]

NARRATIVE: CASE EVENT DATE: 20250601
